FAERS Safety Report 8099926-X (Version None)
Quarter: 2012Q1

REPORT INFORMATION
  Report Type: 
  Country: None (occurrence: None)
  Receive Date: 20120129
  Receipt Date: 20111123
  Transmission Date: 20120608
  Serious: No
  Sender: FDA-Public Use
  Company Number: US-ABBOTT-11P-163-0878212-00

PATIENT
  Sex: Female
  Weight: 52.21 kg

DRUGS (15)
  1. MULTI-VITAMINS [Concomitant]
     Indication: PRODUCT USED FOR UNKNOWN INDICATION
     Dosage: 3 PILLS DAILY
     Route: 048
     Dates: start: 20080327, end: 20081220
  2. NEXIUM [Concomitant]
     Indication: GASTROOESOPHAGEAL REFLUX DISEASE
     Route: 048
     Dates: start: 20080327, end: 20081220
  3. PREDNISONE TAB [Concomitant]
     Route: 048
     Dates: start: 20080327, end: 20080618
  4. PREDNISONE TAB [Concomitant]
     Route: 048
     Dates: start: 20080815, end: 20081220
  5. ACETAMINOPHEN [Concomitant]
     Route: 048
     Dates: start: 20080821, end: 20080821
  6. ACETAMINOPHEN [Concomitant]
     Dosage: 2 TOTAL
     Route: 048
     Dates: start: 20081101, end: 20081220
  7. LEVOTHYROXINE SODIUM [Concomitant]
     Indication: HYPOTHYROIDISM
     Route: 048
     Dates: start: 20080327, end: 20081220
  8. ACETAMINOPHEN [Concomitant]
     Indication: HEAD INJURY
     Route: 048
     Dates: start: 20080508, end: 20080508
  9. HUMIRA [Suspect]
     Indication: PSORIATIC ARTHROPATHY
  10. ACETAMINOPHEN [Concomitant]
     Indication: HEADACHE
     Route: 048
     Dates: start: 20080807, end: 20080807
  11. HUMIRA [Suspect]
     Indication: CROHN'S DISEASE
     Route: 050
     Dates: start: 20080606, end: 20081220
  12. PREDNISONE TAB [Concomitant]
     Indication: CROHN'S DISEASE
     Route: 048
     Dates: start: 20080619, end: 20080731
  13. PREDNISONE TAB [Concomitant]
     Route: 048
     Dates: start: 20080801, end: 20080814
  14. CALCIUM CARBONATE [Concomitant]
     Indication: DYSPEPSIA
     Dosage: 3.5 PILLS TOTAL
     Route: 048
     Dates: start: 20080327, end: 20080617
  15. ASACOL [Concomitant]
     Indication: CROHN'S DISEASE
     Route: 048
     Dates: start: 20080327, end: 20081220

REACTIONS (4)
  - GASTROOESOPHAGEAL REFLUX DISEASE [None]
  - HEADACHE [None]
  - DYSPEPSIA [None]
  - INJURY [None]
